FAERS Safety Report 7620067-7 (Version None)
Quarter: 2011Q3

REPORT INFORMATION
  Report Type: 
  Country: None (occurrence: None)
  Receive Date: 20110719
  Receipt Date: 20110706
  Transmission Date: 20111222
  Serious: Yes (Other)
  Sender: FDA-Public Use
  Company Number: US-SANOFI-AVENTIS-2011SA035623

PATIENT
  Sex: Male

DRUGS (2)
  1. SOLOSTAR [Suspect]
     Indication: TYPE 2 DIABETES MELLITUS
     Dosage: DOSE:10 UNIT(S)
     Route: 058
  2. LANTUS [Suspect]
     Indication: TYPE 2 DIABETES MELLITUS

REACTIONS (2)
  - DEVICE MALFUNCTION [None]
  - BLOOD GLUCOSE INCREASED [None]
